FAERS Safety Report 9507048 (Version 1)
Quarter: 2013Q1

REPORT INFORMATION
  Report Type: Spontaneous
  Country: US (occurrence: None)
  Receive Date: 20130305
  Receipt Date: 20130305
  Transmission Date: 20140127
  Serious: Yes (Disabling, Other)
  Sender: FDA-Public Use
  Company Number: 163-21880-11040794

PATIENT
  Age: 54 Year
  Sex: Male
  Weight: 90.7 kg

DRUGS (13)
  1. REVLIMID [Suspect]
     Indication: LYMPHOCYTIC LEUKAEMIA
     Dosage: 10 MG, 1 IN 1 D, PO?
     Route: 048
     Dates: start: 20101216
  2. REVLIMID [Suspect]
     Indication: DIFFUSE LARGE B-CELL LYMPHOMA
     Dosage: 10 MG, 1 IN 1 D, PO?
     Route: 048
     Dates: start: 20101216
  3. OFORTA [Suspect]
     Indication: LYMPHOCYTIC LEUKAEMIA
     Dosage: 10 MG, FOR 5 DAYS, 21 DAY CYCLE, IV
     Route: 042
     Dates: start: 20110405, end: 20110409
  4. RITUXAN [Suspect]
  5. ALLOPURINOL (ALLOPURINOL) (UNKNOWN) [Concomitant]
  6. FLEXERIL (CYCLOBENZAPRINE HYDROCHOLORIDE) (UNKNOWN) [Concomitant]
  7. AMBIEN (ZOLPIDEM TARTRATE) (UNKNOWN) [Concomitant]
  8. TALWIN (PENTAZOCINE) (UNKNOWN) [Concomitant]
  9. HYDROCODONE (HYDROCODONE) (UNKNOWN) [Concomitant]
  10. POTASSIUM (POTASSIUM) (UNKNOWN) [Concomitant]
  11. PROPRANOLOL (PROPRANOLOL) (UNKNOWN) [Concomitant]
  12. MULTIVITAMINS (MULTIVITAMINS) (UNKNOWN) [Concomitant]
  13. PREDNISONE (PREDNISONE) (UNKNOWN) [Concomitant]

REACTIONS (3)
  - Leukopenia [None]
  - Thrombocytopenia [None]
  - Rash erythematous [None]
